FAERS Safety Report 18450477 (Version 1)
Quarter: 2020Q4

REPORT INFORMATION
  Report Type: Other
  Country: US (occurrence: US)
  Receive Date: 20201030
  Receipt Date: 20201030
  Transmission Date: 20210114
  Serious: Yes (Life-Threatening, Hospitalization, Other)
  Sender: FDA-Public Use
  Company Number: US-C B FLEET CO INC-202010-US-003727

PATIENT
  Age: 25 Year
  Sex: Female

DRUGS (2)
  1. ACETAMINOPHEN. [Suspect]
     Active Substance: ACETAMINOPHEN
     Indication: PRODUCT USED FOR UNKNOWN INDICATION
     Dosage: OVERDOSE OF ACETAMINOPHEN AND DIPHENHYDRAMINE COMBINATION PRODUCT
     Route: 048
  2. DIPHENHYDRAMINE HCL [Suspect]
     Active Substance: DIPHENHYDRAMINE HYDROCHLORIDE
     Indication: PRODUCT USED FOR UNKNOWN INDICATION
     Dosage: OVERDOSE OF DIPHENHYDRAMINE AND ACETAMINOPHEN COMBINATION PRODUCT
     Route: 048

REACTIONS (7)
  - Respiratory rate increased [Unknown]
  - Heart rate increased [Unknown]
  - Body temperature decreased [Unknown]
  - Hypertension [Unknown]
  - Depressed level of consciousness [Recovered/Resolved]
  - Overdose [None]
  - Lactic acidosis [Recovered/Resolved]
